FAERS Safety Report 5511666-7 (Version None)
Quarter: 2007Q4

REPORT INFORMATION
  Report Type: 
  Country: None (occurrence: None)
  Receive Date: 20071109
  Receipt Date: 20071030
  Transmission Date: 20080405
  Serious: Yes (Other)
  Sender: FDA-Public Use
  Company Number: US-PFIZER INC-2007091384

PATIENT
  Age: 90 Year
  Sex: Female

DRUGS (1)
  1. NORVASC [Suspect]
     Indication: HYPERTENSION

REACTIONS (4)
  - ASTHENIA [None]
  - BALANCE DISORDER [None]
  - CARDIAC ARREST [None]
  - CONFUSIONAL STATE [None]
